FAERS Safety Report 9520887 (Version 1)
Quarter: 2013Q1

REPORT INFORMATION
  Report Type: Spontaneous
  Country: US (occurrence: None)
  Receive Date: 20130305
  Receipt Date: 20130305
  Transmission Date: 20140127
  Serious: Yes (Other)
  Sender: FDA-Public Use
  Company Number: 163-21880-12012463

PATIENT
  Age: 64 Year
  Sex: Male
  Weight: 80.9 kg

DRUGS (9)
  1. REVLIMID (LENALIDOMIDE) (25 MILLIGRAM, CAPSULES) [Suspect]
     Indication: PLASMA CELL MYELOMA
     Route: 048
     Dates: start: 201002
  2. OMEPRAZOLE (OMEPRAZOLE) [Concomitant]
  3. PROPRANOL (PROPRANOL) [Concomitant]
  4. FUROSEMIDE (FUROSEMIDE) [Concomitant]
  5. VITAMIN B COMPLEX (B-KOMPLEX ^LECIVA^) [Concomitant]
  6. CITRACAL (CALCIUM CITRATE) [Concomitant]
  7. VITAMIN E (TOCOPHEROL) [Concomitant]
  8. NAFTIN (NAFTIFINE HYDROCHLORIDE) (CREAM) [Concomitant]
  9. IRON (IRON) [Concomitant]

REACTIONS (2)
  - Full blood count decreased [None]
  - Local swelling [None]
